FAERS Safety Report 12450662 (Version 1)
Quarter: 2016Q2

REPORT INFORMATION
  Report Type: Spontaneous
  Country: GB (occurrence: None)
  Receive Date: 20160608
  Receipt Date: 20160608
  Transmission Date: 20160815
  Serious: Yes (Hospitalization, Disabling)
  Sender: FDA-Public Use
  Company Number: None

PATIENT
  Age: 47 Year
  Sex: Female
  Weight: 60 kg

DRUGS (3)
  1. DULOXETINE, 60 MG [Suspect]
     Active Substance: DULOXETINE
     Indication: BORDERLINE PERSONALITY DISORDER
     Route: 048
     Dates: end: 20160530
  2. DULOXETINE, 60 MG [Suspect]
     Active Substance: DULOXETINE
     Indication: DEPRESSION
     Route: 048
     Dates: end: 20160530
  3. COCODAMOL [Concomitant]
     Active Substance: ACETAMINOPHEN\CODEINE PHOSPHATE

REACTIONS (13)
  - Colitis microscopic [None]
  - Hypertension [None]
  - Feeling abnormal [None]
  - Nightmare [None]
  - Irritability [None]
  - Somnolence [None]
  - Tearfulness [None]
  - Night sweats [None]
  - Palpitations [None]
  - Weight increased [None]
  - Nausea [None]
  - Asthenia [None]
  - Drug ineffective [None]

NARRATIVE: CASE EVENT DATE: 20160601
